FAERS Safety Report 10255688 (Version 1)
Quarter: 2014Q2

REPORT INFORMATION
  Report Type: Report from Study
  Country: US (occurrence: US)
  Receive Date: 20140624
  Receipt Date: 20140624
  Transmission Date: 20141212
  Serious: Yes (Other)
  Sender: FDA-Public Use
  Company Number: PHEH2014US012478

PATIENT
  Age: 41 Year
  Sex: Male

DRUGS (4)
  1. AFINITOR [Suspect]
     Dosage: 10 MG, QD
     Route: 048
     Dates: start: 20140414
  2. METFORMIN [Concomitant]
  3. METOPROLOL [Concomitant]
  4. LISINOPRIL [Concomitant]

REACTIONS (2)
  - VIIth nerve paralysis [Unknown]
  - Paraesthesia oral [Unknown]
